FAERS Safety Report 7216013-0 (Version None)
Quarter: 2011Q1

REPORT INFORMATION
  Report Type: 
  Country: None (occurrence: None)
  Receive Date: 20110104
  Receipt Date: 20110104
  Transmission Date: 20110831
  Serious: Yes (Other)
  Sender: FDA-Public Use
  Company Number: None

PATIENT
  Age: 49 Year
  Sex: Female
  Weight: 74.8435 kg

DRUGS (1)
  1. CIPRO [Suspect]
     Indication: URINARY TRACT INFECTION
     Dosage: 250MGS 2 TIMES A DAY PO
     Route: 048
     Dates: start: 20101223, end: 20101231

REACTIONS (5)
  - PAIN [None]
  - MENORRHAGIA [None]
  - BONE PAIN [None]
  - BACK PAIN [None]
  - BURNING SENSATION [None]
